FAERS Safety Report 5041866-4 (Version None)
Quarter: 2006Q2

REPORT INFORMATION
  Report Type: 
  Country: None (occurrence: None)
  Receive Date: 20060630
  Receipt Date: 20060626
  Transmission Date: 20061013
  Serious: Yes (Other)
  Sender: FDA-Public Use
  Company Number: 007849

PATIENT
  Sex: Female

DRUGS (4)
  1. MEDROXYPROGESTERONE ACETATE [Suspect]
     Dosage: ORAL
     Route: 048
     Dates: start: 19990501, end: 20010401
  2. PREMARIN [Suspect]
     Dosage: ORAL
     Route: 048
     Dates: start: 19900501, end: 20010401
  3. PREMPRO [Suspect]
     Dosage: ORAL
     Route: 048
     Dates: start: 19990501, end: 20010401
  4. PROVERA [Suspect]
     Dosage: ORAL
     Route: 048
     Dates: start: 19990501, end: 20010401

REACTIONS (1)
  - BREAST CANCER FEMALE [None]
